FAERS Safety Report 4380664-1 (Version None)
Quarter: 2004Q2

REPORT INFORMATION
  Report Type: 
  Country: None (occurrence: None)
  Receive Date: 20040618
  Receipt Date: 20040609
  Transmission Date: 20050107
  Serious: Yes (Hospitalization)
  Sender: FDA-Public Use
  Company Number: US-ROCHE-370834

PATIENT
  Sex: Female

DRUGS (1)
  1. COPEGUS [Suspect]
     Indication: HEPATITIS C
     Route: 048

REACTIONS (2)
  - LOSS OF CONSCIOUSNESS [None]
  - RASH [None]
